FAERS Safety Report 5887332-5 (Version None)
Quarter: 2008Q3

REPORT INFORMATION
  Report Type: 
  Country: None (occurrence: None)
  Receive Date: 20080918
  Receipt Date: 20080904
  Transmission Date: 20090109
  Serious: Yes (Life-Threatening, Hospitalization, Other)
  Sender: FDA-Public Use
  Company Number: US-BAYER-US-2007-023052

PATIENT
  Age: 38 Year
  Sex: Male

DRUGS (2)
  1. BETASERON [Suspect]
     Indication: RELAPSING-REMITTING MULTIPLE SCLEROSIS
     Dosage: TOTAL DAILY DOSE: 8 MIU
     Route: 058
     Dates: start: 20070711, end: 20080411
  2. BETASERON [Suspect]
     Dosage: TOTAL DAILY DOSE: 8 MIU
     Route: 058
     Dates: start: 20070213, end: 20070609

REACTIONS (16)
  - AUTOIMMUNE DISORDER [None]
  - BLISTER [None]
  - CARDIAC ARREST [None]
  - CHILLS [None]
  - ERYTHEMA [None]
  - GANGRENE [None]
  - INJECTION SITE INDURATION [None]
  - INJECTION SITE INFECTION [None]
  - INJECTION SITE NECROSIS [None]
  - INJECTION SITE ULCER [None]
  - OEDEMA PERIPHERAL [None]
  - PAIN IN EXTREMITY [None]
  - SHOCK [None]
  - TREMOR [None]
  - URTICARIA PAPULAR [None]
  - WEIGHT INCREASED [None]
